FAERS Safety Report 20364890 (Version 3)
Quarter: 2022Q1

REPORT INFORMATION
  Report Type: Spontaneous
  Country: CA (occurrence: CA)
  Receive Date: 20220122
  Receipt Date: 20220302
  Transmission Date: 20220423
  Serious: Yes (Hospitalization, Other)
  Sender: FDA-Public Use
  Company Number: CA-CELLTRION INC.-2022CA000651

PATIENT

DRUGS (2)
  1. INFLECTRA [Suspect]
     Active Substance: INFLIXIMAB-DYYB
     Indication: Colitis ulcerative
     Dosage: 400 MG Q 0, 2, 6, THEN EVERY 8 WEEKSWEEK 0 DOSE AT HOSPITAL
     Route: 042
     Dates: start: 20220112
  2. SULFASALAZINE [Concomitant]
     Active Substance: SULFASALAZINE
     Dosage: DOSAGE INFO: UNKNOWNSTATUS: DISCONTINUED
     Dates: start: 202112

REACTIONS (2)
  - Condition aggravated [Unknown]
  - Loss of personal independence in daily activities [Not Recovered/Not Resolved]

NARRATIVE: CASE EVENT DATE: 20220113
